FAERS Safety Report 4437571-5 (Version None)
Quarter: 2004Q3

REPORT INFORMATION
  Report Type: 
  Country: None (occurrence: None)
  Receive Date: 20040827
  Receipt Date: 20040814
  Transmission Date: 20050211
  Serious: Yes (Other)
  Sender: FDA-Public Use
  Company Number: 2004047301

PATIENT
  Age: 50 Year
  Sex: Female

DRUGS (2)
  1. DILANTIN [Suspect]
     Indication: CONVULSION
     Dosage: 430 MG, ORAL
     Route: 048
     Dates: start: 20040614, end: 20040706
  2. OXCARBAZEPINE (OXCARBAZEPINE) [Concomitant]

REACTIONS (1)
  - BLOOD GLUCOSE DECREASED [None]
